FAERS Safety Report 8803387 (Version 2)
Quarter: 2015Q1

REPORT INFORMATION
  Report Type: Report from Study
  Country: US (occurrence: US)
  Receive Date: 20120924
  Receipt Date: 20150310
  Transmission Date: 20150721
  Serious: Yes (Death)
  Sender: FDA-Public Use
  Company Number: US-ROCHE-1104352

PATIENT
  Sex: Male

DRUGS (20)
  1. LEUCOVORIN [Concomitant]
     Active Substance: LEUCOVORIN
     Route: 042
  2. ARANESP [Concomitant]
     Active Substance: DARBEPOETIN ALFA
     Route: 065
  3. ALOXI [Concomitant]
     Active Substance: PALONOSETRON HYDROCHLORIDE
     Dosage: ON DAY 3 AND DAY17
     Route: 042
  4. ANZEMET [Concomitant]
     Active Substance: DOLASETRON MESYLATE
     Dosage: ON DAY1 AND DAY 15
     Route: 065
  5. TYLENOL [Concomitant]
     Active Substance: ACETAMINOPHEN
     Route: 048
  6. ATIVAN [Concomitant]
     Active Substance: LORAZEPAM
     Dosage: ON DAY 1,3,15,17
     Route: 065
  7. ERBITUX [Concomitant]
     Active Substance: CETUXIMAB
     Route: 042
  8. AVASTIN [Suspect]
     Active Substance: BEVACIZUMAB
     Indication: COLON CANCER
     Dosage: INFUSION DATES; 25/APR/2007, 08/AUG/2007 AND 29/AUG/2007
     Route: 042
  9. CAMPTOSAR [Concomitant]
     Active Substance: IRINOTECAN HYDROCHLORIDE
     Route: 042
  10. DEXAMETHASONE. [Concomitant]
     Active Substance: DEXAMETHASONE
     Route: 042
  11. LORAZEPAM. [Concomitant]
     Active Substance: LORAZEPAM
     Route: 042
  12. PROCRIT [Concomitant]
     Active Substance: ERYTHROPOIETIN
     Route: 065
  13. ZOFRAN [Concomitant]
     Active Substance: ONDANSETRON HYDROCHLORIDE
     Route: 042
  14. AVASTIN [Suspect]
     Active Substance: BEVACIZUMAB
     Indication: COLON CANCER
     Dosage: INFUSION DATES:, 28/MAR/2007, 11/APR/2007, 23/MAY/2007, 13/JUN/2007, 27/JUN/2007 AND 11/JUL/2007
     Route: 042
  15. NEULASTA [Concomitant]
     Active Substance: PEGFILGRASTIM
     Route: 058
  16. CAMPTOSAR [Concomitant]
     Active Substance: IRINOTECAN HYDROCHLORIDE
     Route: 042
  17. LEUCOVORIN [Concomitant]
     Active Substance: LEUCOVORIN
     Route: 042
  18. 5-FLUOROURACIL [Concomitant]
     Active Substance: FLUOROURACIL
     Route: 042
  19. ATROPIN [Concomitant]
     Dosage: ON DAY 1 AND DAY 15
     Route: 042
  20. BENADRYL [Concomitant]
     Active Substance: DIPHENHYDRAMINE HYDROCHLORIDE
     Route: 042

REACTIONS (3)
  - Nail disorder [Unknown]
  - Fatigue [Unknown]
  - Death [Fatal]
